FAERS Safety Report 16743198 (Version 1)
Quarter: 2019Q3

REPORT INFORMATION
  Report Type: Spontaneous
  Country: US (occurrence: US)
  Receive Date: 20190827
  Receipt Date: 20190827
  Transmission Date: 20191005
  Serious: No
  Sender: FDA-Public Use
  Company Number: US-SUN PHARMACEUTICAL INDUSTRIES LTD-2018SUN00534

PATIENT
  Age: 65 Year
  Sex: Female

DRUGS (1)
  1. TECHNETIUM TC-99M PYROPHOSPHATE KIT [Suspect]
     Active Substance: TECHNETIUM TC-99M PYROPHOSPHATE
     Indication: MULTIPLE GATED ACQUISITION SCAN
     Dosage: UNK
     Route: 042
     Dates: start: 20181003

REACTIONS (2)
  - Rash [Recovered/Resolved]
  - Pruritus [Recovering/Resolving]

NARRATIVE: CASE EVENT DATE: 20181003
